FAERS Safety Report 15248454 (Version 1)
Quarter: 2018Q3

REPORT INFORMATION
  Report Type: Spontaneous
  Country: US (occurrence: US)
  Receive Date: 20180807
  Receipt Date: 20180807
  Transmission Date: 20181010
  Serious: No
  Sender: FDA-Public Use
  Company Number: US-BAYER-2018-148050

PATIENT
  Age: 80 Year
  Sex: Female
  Weight: 67.98 kg

DRUGS (11)
  1. WELCHOL [Concomitant]
     Active Substance: COLESEVELAM HYDROCHLORIDE
     Indication: BLOOD CHOLESTEROL
  2. CINNAMON. [Concomitant]
     Active Substance: CINNAMON
  3. ALPHA LIPOIC ACID [Concomitant]
     Active Substance: .ALPHA.-LIPOIC ACID
     Indication: NEUROPATHY PERIPHERAL
  4. BAYER ASPIRIN [Concomitant]
     Active Substance: ASPIRIN
     Indication: ANTICOAGULANT THERAPY
  5. CLARITIN LIQUI?GELS [Suspect]
     Active Substance: LORATADINE
     Indication: EYE PRURITUS
     Dosage: 1 DF, QD
     Route: 048
     Dates: end: 20180801
  6. ONE A DAY ENERGY [Suspect]
     Active Substance: VITAMINS
  7. CITRACAL [Suspect]
     Active Substance: CALCIUM CITRATE
  8. CLARITIN LIQUI?GELS [Suspect]
     Active Substance: LORATADINE
     Indication: LACRIMATION INCREASED
  9. MAGNESIUM [Concomitant]
     Active Substance: MAGNESIUM
  10. UBIQUINOL [Concomitant]
     Active Substance: UBIQUINOL
  11. FLAXSEED [Concomitant]
     Active Substance: FLAX SEED

REACTIONS (2)
  - Product use in unapproved indication [Unknown]
  - Drug ineffective for unapproved indication [Unknown]

NARRATIVE: CASE EVENT DATE: 201802
